FAERS Safety Report 12878879 (Version 3)
Quarter: 2017Q4

REPORT INFORMATION
  Report Type: Spontaneous
  Country: US (occurrence: US)
  Receive Date: 20161024
  Receipt Date: 20171017
  Transmission Date: 20180320
  Serious: Yes (Death, Hospitalization)
  Sender: FDA-Public Use
  Company Number: US-ACTELION-A-US2016-144031

PATIENT
  Age: 71 Year
  Sex: Male

DRUGS (15)
  1. METFORMIN [Concomitant]
     Active Substance: METFORMIN HYDROCHLORIDE
  2. CLOPIDOGREL [Concomitant]
     Active Substance: CLOPIDOGREL BISULFATE
  3. BUMETANIDE. [Concomitant]
     Active Substance: BUMETANIDE
  4. LISINOPRIL. [Concomitant]
     Active Substance: LISINOPRIL
  5. POTASSIUM [Concomitant]
     Active Substance: POTASSIUM
  6. PRAMIPEXOLE. [Concomitant]
     Active Substance: PRAMIPEXOLE
  7. ASPIRIN. [Concomitant]
     Active Substance: ASPIRIN
  8. SAVELLA [Concomitant]
     Active Substance: MILNACIPRAN HYDROCHLORIDE
  9. SPIRIVA [Concomitant]
     Active Substance: TIOTROPIUM BROMIDE MONOHYDRATE
  10. IRON [Concomitant]
     Active Substance: IRON
  11. ADCIRCA [Concomitant]
     Active Substance: TADALAFIL
  12. CARDIZEM [Concomitant]
     Active Substance: DILTIAZEM HYDROCHLORIDE
  13. GABAPENTIN. [Concomitant]
     Active Substance: GABAPENTIN
  14. TRACLEER [Suspect]
     Active Substance: BOSENTAN
     Indication: PULMONARY ARTERIAL HYPERTENSION
     Dosage: 125 MG, BID
     Route: 048
     Dates: start: 20130611
  15. ATORVASTATIN [Concomitant]
     Active Substance: ATORVASTATIN

REACTIONS (7)
  - Renal failure [Recovered/Resolved]
  - Hypotension [Unknown]
  - Hypoxia [Unknown]
  - Death [Fatal]
  - Acute respiratory failure [Unknown]
  - Clostridium difficile infection [Unknown]
  - Fluid retention [Recovered/Resolved]

NARRATIVE: CASE EVENT DATE: 20160919
